FAERS Safety Report 4579803-9 (Version None)
Quarter: 2005Q1

REPORT INFORMATION
  Report Type: 
  Country: None (occurrence: None)
  Receive Date: 20050208
  Receipt Date: 20050122
  Transmission Date: 20050727
  Serious: Yes (Other)
  Sender: FDA-Public Use
  Company Number: 601398

PATIENT
  Age: 14 Month
  Sex: Male
  Weight: 12 kg

DRUGS (4)
  1. ADVATE [Suspect]
     Indication: FACTOR VIII DEFICIENCY
     Dosage: 500 IU; PRN; INTRAVENOUS
     Route: 042
     Dates: start: 20040401, end: 20040714
  2. ADVATE [Suspect]
  3. ADVATE [Suspect]
  4. ADVATE [Suspect]

REACTIONS (1)
  - FACTOR VIII INHIBITION [None]
